FAERS Safety Report 9061382 (Version 1)
Quarter: 2013Q1

REPORT INFORMATION
  Report Type: Spontaneous
  Country: US (occurrence: None)
  Receive Date: 20130208
  Receipt Date: 20130208
  Transmission Date: 20140127
  Serious: Yes (Life-Threatening)
  Sender: FDA-Public Use
  Company Number: None

PATIENT
  Age: 44 Year
  Sex: Male
  Weight: 98.88 kg

DRUGS (3)
  1. INCIVEK 375MG VERTEX [Suspect]
     Route: 048
     Dates: start: 20130127
  2. PEGASYS [Suspect]
     Route: 058
  3. RIBIVIRIN [Concomitant]

REACTIONS (1)
  - Hallucination, visual [None]
